FAERS Safety Report 5194798-5 (Version None)
Quarter: 2006Q4

REPORT INFORMATION
  Report Type: 
  Country: None (occurrence: None)
  Receive Date: 20061229
  Receipt Date: 20061220
  Transmission Date: 20070319
  Serious: Yes (Hospitalization, Other)
  Sender: FDA-Public Use
  Company Number: IL-SANOFI-SYNTHELABO-F01200602548

PATIENT
  Sex: Female
  Weight: 66 kg

DRUGS (1)
  1. CLOPIDOGREL [Suspect]
     Indication: ACUTE CORONARY SYNDROME
     Dosage: UNK
     Dates: start: 20050928, end: 20060717

REACTIONS (2)
  - RECTAL HAEMORRHAGE [None]
  - SCLERODERMA [None]
